FAERS Safety Report 7788991-2 (Version None)
Quarter: 2011Q3

REPORT INFORMATION
  Report Type: 
  Country: None (occurrence: None)
  Receive Date: 20110930
  Receipt Date: 20110916
  Transmission Date: 20111222
  Serious: Yes (Other)
  Sender: FDA-Public Use
  Company Number: PHHY2011AR83128

PATIENT
  Sex: Female

DRUGS (3)
  1. T4 [Concomitant]
  2. DORIXINA [Concomitant]
  3. RASILEZ [Suspect]
     Indication: BLOOD PRESSURE
     Dosage: 1 DF, QD
     Dates: start: 20100801

REACTIONS (4)
  - FEELING ABNORMAL [None]
  - CHILLS [None]
  - MUSCULOSKELETAL STIFFNESS [None]
  - ABASIA [None]
